FAERS Safety Report 14870273 (Version 1)
Quarter: 2018Q2

REPORT INFORMATION
  Report Type: Spontaneous
  Country: US (occurrence: US)
  Receive Date: 20180509
  Receipt Date: 20180509
  Transmission Date: 20180711
  Serious: No
  Sender: FDA-Public Use
  Company Number: US-SA-2018SA078678

PATIENT
  Age: 80 Year
  Sex: Male

DRUGS (1)
  1. LEVOCETIRIZINE [Suspect]
     Active Substance: LEVOCETIRIZINE
     Indication: SINUS DISORDER
     Route: 048

REACTIONS (3)
  - Blood pressure decreased [Unknown]
  - Sinus disorder [Unknown]
  - Nausea [Unknown]
